FAERS Safety Report 24427117 (Version 1)
Quarter: 2024Q4

REPORT INFORMATION
  Report Type: Spontaneous
  Country: US (occurrence: None)
  Receive Date: 20241011
  Receipt Date: 20241011
  Transmission Date: 20250114
  Serious: Yes (Hospitalization)
  Sender: Public
  Company Number: None

PATIENT
  Sex: Male
  Weight: 97 kg

DRUGS (5)
  1. FLUOROURACIL [Suspect]
     Active Substance: FLUOROURACIL
     Dates: end: 20241003
  2. CAMPTOSAR [Suspect]
     Active Substance: IRINOTECAN HYDROCHLORIDE
  3. LEUCOVORIN CALCIUM [Suspect]
     Active Substance: LEUCOVORIN CALCIUM
  4. NIVOLUMAB [Suspect]
     Active Substance: NIVOLUMAB
  5. ELOXATIN [Suspect]
     Active Substance: OXALIPLATIN

REACTIONS (2)
  - Dysphagia [None]
  - Oesophageal prosthesis insertion [None]

NARRATIVE: CASE EVENT DATE: 20241009
